FAERS Safety Report 16814595 (Version 1)
Quarter: 2019Q3

REPORT INFORMATION
  Report Type: Spontaneous
  Country: GB (occurrence: GB)
  Receive Date: 20190917
  Receipt Date: 20190917
  Transmission Date: 20191005
  Serious: Yes (Life-Threatening, Disabling)
  Sender: FDA-Public Use
  Company Number: GB-TEVA-2019-GB-1106977

PATIENT
  Age: 55 Year
  Sex: Male

DRUGS (15)
  1. CHEMYDUR XL [Concomitant]
     Active Substance: ISOSORBIDE MONONITRATE
     Dosage: N/A
  2. PRAVASTATIN. [Suspect]
     Active Substance: PRAVASTATIN
     Indication: BLOOD CHOLESTEROL
     Dosage: 20 MILLIGRAM PER DAY
     Route: 048
     Dates: start: 20190617, end: 20190701
  3. SPIRIVA [Concomitant]
     Active Substance: TIOTROPIUM BROMIDE MONOHYDRATE
     Indication: ASTHMA
     Dosage: N/A
  4. VENTOLIN [Concomitant]
     Active Substance: ALBUTEROL SULFATE
     Indication: ASTHMA
     Dosage: N/A
  5. OMEPRAZOLE. [Concomitant]
     Active Substance: OMEPRAZOLE
     Indication: GASTRIC ULCER
     Dosage: N/A
  6. SIRDUPLA [Concomitant]
     Active Substance: FLUTICASONE PROPIONATE\SALMETEROL XINAFOATE
     Indication: ASTHMA
     Dosage: N/A
  7. TEGRETOL [Concomitant]
     Active Substance: CARBAMAZEPINE
     Indication: EPILEPSY
     Dosage: N/A
  8. METFORMIN [Concomitant]
     Active Substance: METFORMIN HYDROCHLORIDE
     Indication: DIABETES MELLITUS
     Dosage: N/A
  9. RANOLAZINE. [Concomitant]
     Active Substance: RANOLAZINE
     Dosage: N/A
  10. TILDIEM LA [Concomitant]
     Active Substance: DILTIAZEM HYDROCHLORIDE
     Dosage: N/A
  11. LOFEPRAMINE [Concomitant]
     Active Substance: LOFEPRAMINE
     Indication: DEPRESSION
     Dosage: N/A
  12. PIOGLITAZONE. [Concomitant]
     Active Substance: PIOGLITAZONE
     Indication: DIABETES MELLITUS
     Dosage: N/A
  13. PREGABALIN. [Concomitant]
     Active Substance: PREGABALIN
     Indication: NEUROPATHY PERIPHERAL
     Dosage: N/A
  14. SITAGLIPTIN [Concomitant]
     Active Substance: SITAGLIPTIN
     Indication: DIABETES MELLITUS
     Dosage: N/A
  15. ACETYLSALICYLIC ACID [Concomitant]
     Active Substance: ASPIRIN
     Dosage: N/A

REACTIONS (1)
  - Hypotension [Recovered/Resolved]

NARRATIVE: CASE EVENT DATE: 20190621
